FAERS Safety Report 7138290-7 (Version None)
Quarter: 2010Q4

REPORT INFORMATION
  Report Type: 
  Country: None (occurrence: None)
  Receive Date: 20101206
  Receipt Date: 20070711
  Transmission Date: 20110411
  Serious: Yes (Death, Other)
  Sender: FDA-Public Use
  Company Number: AU-ROCHE-743483

PATIENT

DRUGS (1)
  1. CELLCEPT [Suspect]
     Route: 065

REACTIONS (2)
  - DEATH [None]
  - HAEMOPTYSIS [None]
